FAERS Safety Report 12314226 (Version 1)
Quarter: 2016Q2

REPORT INFORMATION
  Report Type: Spontaneous
  Country: CH (occurrence: CH)
  Receive Date: 20160428
  Receipt Date: 20160428
  Transmission Date: 20160815
  Serious: Yes (Hospitalization)
  Sender: FDA-Public Use
  Company Number: CH-ELI_LILLY_AND_COMPANY-CH201604008296

PATIENT
  Age: 51 Year
  Sex: Male

DRUGS (12)
  1. FLOXYFRAL [Interacting]
     Active Substance: FLUVOXAMINE
     Dosage: 150 MG, QD
     Route: 065
     Dates: start: 20151127
  2. LITHIOFOR [Interacting]
     Active Substance: LITHIUM SULFATE
     Indication: PRODUCT USED FOR UNKNOWN INDICATION
     Dosage: 6 MMOL, QD
     Route: 048
  3. ZYPREXA [Suspect]
     Active Substance: OLANZAPINE
     Indication: ANXIETY
     Dosage: 10 MG, QD
     Route: 048
     Dates: end: 20160208
  4. RIVOTRIL [Interacting]
     Active Substance: CLONAZEPAM
     Dosage: 1 MG, EACH MORNING
     Route: 048
     Dates: start: 20160209
  5. RIVOTRIL [Interacting]
     Active Substance: CLONAZEPAM
     Dosage: 1 MG, EACH EVENING
     Route: 048
     Dates: start: 20160209
  6. FLOXYFRAL [Interacting]
     Active Substance: FLUVOXAMINE
     Indication: DEPRESSION
     Dosage: 100 MG, QD
     Route: 065
     Dates: end: 20151126
  7. MOTILIUM [Concomitant]
     Active Substance: DOMPERIDONE
     Indication: PRODUCT USED FOR UNKNOWN INDICATION
     Dosage: 10 MG, TID
     Route: 048
     Dates: end: 201602
  8. RIVOTRIL [Interacting]
     Active Substance: CLONAZEPAM
     Indication: PRODUCT USED FOR UNKNOWN INDICATION
     Dosage: 1 MG, EACH MORNING
     Route: 048
     Dates: end: 20160103
  9. ZYPREXA [Interacting]
     Active Substance: OLANZAPINE
     Dosage: 5 MG, QD
     Route: 048
     Dates: start: 20160209
  10. LITHIOFOR [Interacting]
     Active Substance: LITHIUM SULFATE
     Dosage: 12 MMOL, QD
     Route: 048
  11. RIVOTRIL [Interacting]
     Active Substance: CLONAZEPAM
     Dosage: 2 MG, BID
     Route: 048
     Dates: start: 20160104, end: 20160208
  12. RIVOTRIL [Interacting]
     Active Substance: CLONAZEPAM
     Dosage: 2 MG, EACH EVENING
     Route: 048
     Dates: end: 20160103

REACTIONS (7)
  - Dysphagia [Recovering/Resolving]
  - Regurgitation [Unknown]
  - Rhinitis [Unknown]
  - Drug interaction [Unknown]
  - Pneumonia klebsiella [Recovered/Resolved]
  - Abdominal pain [Unknown]
  - Decreased appetite [Unknown]

NARRATIVE: CASE EVENT DATE: 201602
